FAERS Safety Report 8037960 (Version 3)
Quarter: 2014Q2

REPORT INFORMATION
  Report Type: Spontaneous
  Country: US (occurrence: US)
  Receive Date: 20110715
  Receipt Date: 20140516
  Transmission Date: 20141212
  Serious: Yes (Other)
  Sender: FDA-Public Use
  Company Number: US-ASTRAZENECA-2011SE40566

PATIENT
  Age: 57 Year
  Sex: Male

DRUGS (7)
  1. NEXIUM [Suspect]
     Route: 048
  2. NEXIUM [Suspect]
     Route: 048
     Dates: start: 2007
  3. ACCOLATE [Concomitant]
  4. PLENDIL [Concomitant]
  5. TOPROL XL [Concomitant]
  6. ANTICOAGULANT [Concomitant]
  7. ASPIRIN [Concomitant]

REACTIONS (4)
  - Gastric ulcer haemorrhage [Unknown]
  - Cardiac disorder [Unknown]
  - Gastric disorder [Unknown]
  - Drug dose omission [Not Recovered/Not Resolved]
